FAERS Safety Report 6882756-1 (Version None)
Quarter: 2010Q3

REPORT INFORMATION
  Report Type: 
  Country: None (occurrence: None)
  Receive Date: 20100702
  Receipt Date: 20100423
  Transmission Date: 20110219
  Serious: Yes (Hospitalization, Other)
  Sender: FDA-Public Use
  Company Number: 2009246502

PATIENT
  Age: 48 Year
  Sex: Female

DRUGS (8)
  1. ZOLOFT [Suspect]
     Indication: DEPRESSION
     Dosage: 50 MG, ORAL
     Route: 048
     Dates: start: 20050713
  2. MOTRIN IB [Suspect]
     Indication: ANALGESIC THERAPY
     Dosage: ORAL
     Route: 048
     Dates: start: 20050713
  3. MOTRIN IB [Suspect]
     Indication: HEADACHE
     Dosage: ORAL
     Route: 048
     Dates: start: 20050713
  4. MOTRIN IB [Suspect]
     Indication: MIGRAINE
     Dosage: ORAL
     Route: 048
     Dates: start: 20050713
  5. ACETAMINOPHEN [Suspect]
     Indication: ANALGESIC THERAPY
     Dosage: 2 DF, 1 IN 2 HOUR, ORAL
     Route: 048
     Dates: start: 20050714
  6. VALSARTAN [Concomitant]
  7. ATENOLOL [Concomitant]
  8. BUTALBITAL, ACETAMINOPHEN + CAFFEINE (BUTALBITAL CAFFEINE PARACETAMOL) [Concomitant]

REACTIONS (1)
  - STEVENS-JOHNSON SYNDROME [None]
